FAERS Safety Report 7393636-X (Version None)
Quarter: 2011Q1

REPORT INFORMATION
  Report Type: 
  Country: None (occurrence: None)
  Receive Date: 20110331
  Receipt Date: 20110331
  Transmission Date: 20110831
  Serious: Yes (Other)
  Sender: FDA-Public Use
  Company Number: None

PATIENT
  Age: 74 Year
  Sex: Female
  Weight: 63.5036 kg

DRUGS (3)
  1. AORTIC VALVE REPLACEMENT [Concomitant]
  2. AMIODARONE HCL [Suspect]
     Indication: ATRIAL FIBRILLATION
     Dosage: HCL 200MG TAB. ONCE DAILY MOUTH (DIRECTIONS: STOP BY 11-11-10)
     Route: 048
     Dates: start: 20101018, end: 20101101
  3. MAIZE PROCEDURE [Concomitant]

REACTIONS (5)
  - HEART RATE IRREGULAR [None]
  - VISUAL ACUITY REDUCED [None]
  - NAUSEA [None]
  - EXOPHTHALMOS [None]
  - DIZZINESS [None]
